FAERS Safety Report 18110563 (Version 3)
Quarter: 2021Q2

REPORT INFORMATION
  Report Type: Spontaneous
  Country: US (occurrence: US)
  Receive Date: 20200804
  Receipt Date: 20210629
  Transmission Date: 20210717
  Serious: Yes (Death, Other)
  Sender: FDA-Public Use
  Company Number: US-TEVA-2020-US-1810427

PATIENT
  Age: 80 Year
  Sex: Female

DRUGS (3)
  1. PREDNISONE. [Suspect]
     Active Substance: PREDNISONE
     Indication: STEVENS-JOHNSON SYNDROME
     Route: 065
  2. GSK 137173A [Suspect]
     Active Substance: RECOMBINANT VARICELLA ZOSTER VIRUS (VZV) GLYCOPROTEIN E
     Indication: IMMUNISATION
     Dosage: RECEIVED ONE DOSE
     Route: 065
  3. PEMBROLIZUMAB. [Suspect]
     Active Substance: PEMBROLIZUMAB
     Indication: LUNG ADENOCARCINOMA
     Dosage: SHE RECEIVED A TOTAL OF 6 DOSES OF PEMBROLIZUMAB BEFORE PRESENTATION (15 WEEKS).
     Route: 065

REACTIONS (3)
  - Duodenal ulcer perforation [Fatal]
  - Sepsis [Fatal]
  - Stevens-Johnson syndrome [Recovering/Resolving]
